FAERS Safety Report 8087865-X (Version None)
Quarter: 2012Q1

REPORT INFORMATION
  Report Type: 
  Country: None (occurrence: None)
  Receive Date: 20120128
  Receipt Date: 20110502
  Transmission Date: 20120608
  Serious: No
  Sender: FDA-Public Use
  Company Number: US-ABBOTT-11P-163-0723185-00

PATIENT
  Sex: Female

DRUGS (1)
  1. HUMIRA [Suspect]
     Indication: SPONDYLITIS
     Dates: start: 20110401

REACTIONS (5)
  - NAUSEA [None]
  - ARTHRALGIA [None]
  - GAIT DISTURBANCE [None]
  - VOMITING [None]
  - JOINT STIFFNESS [None]
